FAERS Safety Report 14991867 (Version 3)
Quarter: 2018Q3

REPORT INFORMATION
  Report Type: Spontaneous
  Country: US (occurrence: US)
  Receive Date: 20180608
  Receipt Date: 20180808
  Transmission Date: 20181010
  Serious: Yes (Hospitalization)
  Sender: FDA-Public Use
  Company Number: US-ACTELION-A-NJ2018-173423

PATIENT
  Age: 37 Year
  Sex: Female
  Weight: 52.15 kg

DRUGS (4)
  1. OPSUMIT [Suspect]
     Active Substance: MACITENTAN
     Indication: PULMONARY ARTERIAL HYPERTENSION
     Dosage: 10 MG, QD
     Route: 048
     Dates: start: 20160119
  2. UPTRAVI [Suspect]
     Active Substance: SELEXIPAG
     Dosage: 1000 MCG, BID
     Route: 048
  3. UPTRAVI [Suspect]
     Active Substance: SELEXIPAG
     Indication: PULMONARY ARTERIAL HYPERTENSION
     Dosage: 800 MCG, BID
     Route: 048
     Dates: start: 20180213
  4. ADCIRCA [Concomitant]
     Active Substance: TADALAFIL
     Dosage: 40 MG, QD
     Dates: start: 20170124

REACTIONS (8)
  - Embolism arterial [Recovered/Resolved]
  - Uterine leiomyoma [Recovered/Resolved]
  - Laboratory test abnormal [Unknown]
  - Cyst removal [Unknown]
  - Pelvic pain [Unknown]
  - Anaemia [Unknown]
  - Uterine cyst [Recovered/Resolved]
  - Uterine haemorrhage [Recovered/Resolved]
